FAERS Safety Report 13900602 (Version 1)
Quarter: 2017Q3

REPORT INFORMATION
  Report Type: Spontaneous
  Country: US (occurrence: None)
  Receive Date: 20170818
  Receipt Date: 20170818
  Transmission Date: 20171127
  Serious: Yes (Hospitalization)
  Sender: FDA-Public Use
  Company Number: None

PATIENT
  Age: 26 Year
  Sex: Female

DRUGS (14)
  1. PROMACTA [Suspect]
     Active Substance: ELTROMBOPAG OLAMINE
     Indication: BRAIN NEOPLASM
     Dosage: DOSE - 150MG (2 TABS)
     Route: 048
     Dates: start: 20161116
  2. TOPIRAM BUSPIRONE [Concomitant]
  3. DIVALPROEX [Concomitant]
     Active Substance: DIVALPROEX SODIUM
  4. CEPHALEXIN. [Concomitant]
     Active Substance: CEPHALEXIN
  5. POTASSIUM CHLORIDE. [Concomitant]
     Active Substance: POTASSIUM CHLORIDE
  6. DULOXETINE. [Concomitant]
     Active Substance: DULOXETINE
  7. GLEOSTINE [Suspect]
     Active Substance: LOMUSTINE
     Indication: BRAIN NEOPLASM
     Dosage: FREQUENCY - Q 6 WEEKS
     Route: 048
     Dates: start: 20170111
  8. GLEOSTINE [Suspect]
     Active Substance: LOMUSTINE
     Indication: BRAIN NEOPLASM
     Dosage: FREQUENCY - Q 6 WEEKS
     Route: 048
     Dates: start: 20170111
  9. LYRICA [Concomitant]
     Active Substance: PREGABALIN
  10. OXYCODONE [Concomitant]
     Active Substance: OXYCODONE
  11. GLEOSTINE [Suspect]
     Active Substance: LOMUSTINE
     Indication: BRAIN NEOPLASM
     Dosage: Q 6 WKS
     Route: 048
     Dates: start: 20170111
  12. MICROGOTET [Concomitant]
  13. ONDANSETRON [Concomitant]
     Active Substance: ONDANSETRON
  14. CEFADROX [Concomitant]

REACTIONS (1)
  - Mouth haemorrhage [None]

NARRATIVE: CASE EVENT DATE: 20170809
